FAERS Safety Report 14553173 (Version 2)
Quarter: 2018Q2

REPORT INFORMATION
  Report Type: Spontaneous
  Country: US (occurrence: US)
  Receive Date: 20180220
  Receipt Date: 20180422
  Transmission Date: 20180711
  Serious: No
  Sender: FDA-Public Use
  Company Number: US-APOTEX-2017AP012942

PATIENT
  Age: 71 Year
  Sex: Male

DRUGS (1)
  1. DOCETAXEL. [Suspect]
     Active Substance: DOCETAXEL
     Dosage: UNK,
     Route: 065

REACTIONS (5)
  - Oedema peripheral [Unknown]
  - Skin tightness [Unknown]
  - Pain in extremity [Unknown]
  - Erythema [Unknown]
  - Skin hypertrophy [Unknown]
